FAERS Safety Report 5231008-4 (Version None)
Quarter: 2007Q1

REPORT INFORMATION
  Report Type: 
  Country: None (occurrence: None)
  Receive Date: 20070206
  Receipt Date: 20070131
  Transmission Date: 20070707
  Serious: Yes (Hospitalization)
  Sender: FDA-Public Use
  Company Number: GB-GLAXOSMITHKLINE-B0361289A

PATIENT
  Sex: Female

DRUGS (1)
  1. PAROXETINE HYDROCHLORIDE [Suspect]
     Indication: BULIMIA NERVOSA
     Route: 065
     Dates: start: 20021101, end: 20030301

REACTIONS (2)
  - DRUG WITHDRAWAL SYNDROME [None]
  - INTENTIONAL SELF-INJURY [None]
